FAERS Safety Report 5128720-4 (Version None)
Quarter: 2006Q4

REPORT INFORMATION
  Report Type: 
  Country: None (occurrence: None)
  Receive Date: 20061011
  Receipt Date: 20060928
  Transmission Date: 20070319
  Serious: Yes (Other)
  Sender: FDA-Public Use
  Company Number: 2006107793

PATIENT
  Age: 67 Year
  Sex: Male
  Weight: 99.7913 kg

DRUGS (8)
  1. CHANTIX [Suspect]
     Indication: SMOKING CESSATION THERAPY
     Dates: start: 20060101
  2. ATENOLOL [Concomitant]
  3. NORVASC [Concomitant]
  4. ISOSORBIDE (ISOSORBIDE) [Concomitant]
  5. ASPIRIN [Concomitant]
  6. NIASPAN [Concomitant]
  7. NEXIUM [Concomitant]
  8. EFFEXOR [Concomitant]

REACTIONS (12)
  - ASTHENIA [None]
  - CARDIOVASCULAR DISORDER [None]
  - CHEST PAIN [None]
  - CONDITION AGGRAVATED [None]
  - DIZZINESS [None]
  - FATIGUE [None]
  - LUNG DISORDER [None]
  - MUSCULAR WEAKNESS [None]
  - PAIN [None]
  - PLEURITIC PAIN [None]
  - SMOKER [None]
  - TOBACCO WITHDRAWAL SYMPTOMS [None]
